FAERS Safety Report 12253713 (Version 1)
Quarter: 2016Q2

REPORT INFORMATION
  Report Type: Spontaneous
  Country: US (occurrence: US)
  Receive Date: 20160411
  Receipt Date: 20160411
  Transmission Date: 20160815
  Serious: No
  Sender: FDA-Public Use
  Company Number: US-BEH-2015049752

PATIENT
  Age: 36 Year
  Sex: Female

DRUGS (1)
  1. RHOPHYLAC [Suspect]
     Active Substance: HUMAN RHO(D) IMMUNE GLOBULIN
     Dosage: 300 MCG
     Route: 042
     Dates: start: 20150313, end: 20150313

REACTIONS (2)
  - Infusion site extravasation [Unknown]
  - Drug administration error [Unknown]

NARRATIVE: CASE EVENT DATE: 20150313
